FAERS Safety Report 6278941-2 (Version None)
Quarter: 2009Q3

REPORT INFORMATION
  Report Type: 
  Country: None (occurrence: None)
  Receive Date: 20090723
  Receipt Date: 20090713
  Transmission Date: 20100115
  Serious: Yes (Hospitalization)
  Sender: FDA-Public Use
  Company Number: FR-JNJFOC-20090705029

PATIENT
  Sex: Female

DRUGS (9)
  1. RISPERDAL [Suspect]
     Indication: AGITATION
     Route: 048
  2. DEPAKOTE [Suspect]
     Indication: BIPOLAR I DISORDER
     Route: 048
  3. CONTRAMAL [Suspect]
     Indication: BACK PAIN
     Route: 048
  4. LOVENOX [Suspect]
     Indication: THROMBOSIS PROPHYLAXIS
     Route: 058
  5. IMOVANE [Concomitant]
     Route: 065
  6. PRAZEPAM [Concomitant]
     Dosage: LONG STANDING THERAPY
     Route: 048
  7. KARDEGIC [Concomitant]
     Dosage: LONG STANDING THERAPY
     Route: 065
  8. POLYETHYLENE GLYCOL [Concomitant]
     Dosage: LONG STANDING THERAPY
     Route: 065
  9. DOLIPRANE [Concomitant]
     Route: 065

REACTIONS (1)
  - CYTOLYTIC HEPATITIS [None]
